FAERS Safety Report 14018716 (Version 3)
Quarter: 2017Q4

REPORT INFORMATION
  Report Type: Spontaneous
  Country: US (occurrence: US)
  Receive Date: 20170928
  Receipt Date: 20171106
  Transmission Date: 20180321
  Serious: No
  Sender: FDA-Public Use
  Company Number: US-PFIZER INC-2017413389

PATIENT
  Sex: Female

DRUGS (1)
  1. SOLU-MEDROL [Suspect]
     Active Substance: METHYLPREDNISOLONE SODIUM SUCCINATE
     Dosage: UNK (40 MG 1 ML ACT-O-VIAL X 25)

REACTIONS (3)
  - Product container issue [Unknown]
  - Occupational exposure to product [Unknown]
  - Wound haemorrhage [Unknown]

NARRATIVE: CASE EVENT DATE: 20170922
